FAERS Safety Report 14659809 (Version 6)
Quarter: 2020Q4

REPORT INFORMATION
  Report Type: Spontaneous
  Country: IT (occurrence: IT)
  Receive Date: 20180320
  Receipt Date: 20201203
  Transmission Date: 20210113
  Serious: Yes (Hospitalization, Other)
  Sender: FDA-Public Use
  Company Number: IT-ASTRAZENECA-2018SE31874

PATIENT
  Age: 51 Year
  Sex: Female

DRUGS (4)
  1. AERIUS (DESLORATADINE) [Suspect]
     Active Substance: DESLORATADINE
     Indication: SELF-INJURIOUS IDEATION
     Dosage: 3 DF, TOTAL (STRENGTH: 5 MG) ONCE/SINGLE ADMINISTRATION
     Route: 048
     Dates: start: 20170805, end: 20170805
  2. QUETIAPINE FUMARATE. [Suspect]
     Active Substance: QUETIAPINE FUMARATE
     Indication: SELF-INJURIOUS IDEATION
     Dosage: 60 DF ONCE/SINGLE ADMINISTRATION
     Route: 048
     Dates: start: 20170805, end: 20170805
  3. CETIRIZINE + PSEUDOEPHEDRINE [Suspect]
     Active Substance: CETIRIZINE HYDROCHLORIDE\PSEUDOEPHEDRINE HYDROCHLORIDE
     Indication: SELF-INJURIOUS IDEATION
     Dosage: 12 DF, TOTAL (STRENGTH 5 MG/120MG) ONCE/SINGLE ADMINISTRATION
     Route: 048
     Dates: start: 20170805, end: 20170805
  4. VENLAFAXINE HYDROCHLORIDE. [Suspect]
     Active Substance: VENLAFAXINE HYDROCHLORIDE
     Indication: SELF-INJURIOUS IDEATION
     Dosage: 5 DF, TOTAL (STRENGTH: 150 MG) ONCE/SINGLE ADMINISTRATION
     Route: 048
     Dates: start: 20170805, end: 20170805

REACTIONS (4)
  - Coma [Recovered/Resolved]
  - Intentional overdose [Unknown]
  - Drug abuse [Recovered/Resolved]
  - Self-injurious ideation [Recovered/Resolved]

NARRATIVE: CASE EVENT DATE: 20170805
